FAERS Safety Report 8000271-9 (Version None)
Quarter: 2011Q4

REPORT INFORMATION
  Report Type: 
  Country: None (occurrence: None)
  Receive Date: 20111216
  Receipt Date: 20111205
  Transmission Date: 20120403
  Serious: Yes (Hospitalization)
  Sender: FDA-Public Use
  Company Number: AUR-APL-2011-06053

PATIENT
  Age: 42 Year
  Sex: Female

DRUGS (4)
  1. RAMIPRIL [Concomitant]
  2. DULOXETINE HYDROCHLORIDE [Suspect]
     Indication: PRODUCT USED FOR UNKNOWN INDICATION
     Dosage: 30 MG (30 MG, 1 IN 1 D), ORAL
     Route: 048
     Dates: start: 20110608
  3. MIRTAZAPINE [Suspect]
     Indication: PRODUCT USED FOR UNKNOWN INDICATION
     Dosage: 7.5 MG (7.5 MG, 1 IN 1 D), ORAL
     Route: 048
     Dates: start: 20110608, end: 20110613
  4. CITALOPRAM HYDROBROMIDE [Concomitant]

REACTIONS (2)
  - LIPOEDEMA [None]
  - OEDEMA PERIPHERAL [None]
